FAERS Safety Report 21949762 (Version 1)
Quarter: 2023Q1

REPORT INFORMATION
  Report Type: Spontaneous
  Country: US (occurrence: US)
  Receive Date: 20230203
  Receipt Date: 20230203
  Transmission Date: 20230418
  Serious: No
  Sender: FDA-Public Use
  Company Number: US-GLENMARK PHARMACEUTICALS-2022GMK076364

PATIENT

DRUGS (1)
  1. RYALTRIS [Suspect]
     Active Substance: MOMETASONE FUROATE MONOHYDRATE\OLOPATADINE HYDROCHLORIDE
     Indication: Hypersensitivity
     Dosage: UNK, BID (TWO SPRAYS IN EACH NOSTRIL)
     Route: 045

REACTIONS (7)
  - Nasal congestion [Unknown]
  - Feeling abnormal [Unknown]
  - Headache [Unknown]
  - Dysgeusia [Unknown]
  - Hypersensitivity [Unknown]
  - Device delivery system issue [Unknown]
  - Drug ineffective [Unknown]
